FAERS Safety Report 11214478 (Version 1)
Quarter: 2015Q2

REPORT INFORMATION
  Report Type: Spontaneous
  Country: US (occurrence: None)
  Receive Date: 20150608
  Receipt Date: 20150608
  Transmission Date: 20150821
  Serious: No
  Sender: FDA-Public Use
  Company Number: HYP201503-000027

PATIENT
  Age: 68 Year
  Sex: Male

DRUGS (2)
  1. RAVICTI [Suspect]
     Active Substance: GLYCEROL PHENYLBUTYRATE
     Indication: OFF LABEL USE
     Dates: start: 20150311
  2. RAVICTI [Suspect]
     Active Substance: GLYCEROL PHENYLBUTYRATE
     Indication: HEPATIC ENCEPHALOPATHY
     Dates: start: 20150311

REACTIONS (6)
  - Laceration [None]
  - Fall [None]
  - Headache [None]
  - Lethargy [None]
  - Dizziness [None]
  - Decreased appetite [None]

NARRATIVE: CASE EVENT DATE: 20150312
